FAERS Safety Report 8540834-5 (Version None)
Quarter: 2012Q3

REPORT INFORMATION
  Report Type: 
  Country: None (occurrence: None)
  Receive Date: 20120726
  Receipt Date: 20120717
  Transmission Date: 20120928
  Serious: Yes (Hospitalization, Other)
  Sender: FDA-Public Use
  Company Number: TW-ABBOTT-12P-153-0947959-00

PATIENT
  Sex: Male
  Weight: 58 kg

DRUGS (1)
  1. HUMIRA [Suspect]
     Indication: RHEUMATOID ARTHRITIS
     Route: 058
     Dates: start: 20090101, end: 20120509

REACTIONS (9)
  - PNEUMONIA LEGIONELLA [None]
  - DUODENAL ULCER HAEMORRHAGE [None]
  - ACINETOBACTER TEST POSITIVE [None]
  - RENAL CYST [None]
  - RESPIRATORY FAILURE [None]
  - EXOSTOSIS [None]
  - SPINAL OSTEOARTHRITIS [None]
  - PNEUMONIA [None]
  - PLEURAL EFFUSION [None]
